FAERS Safety Report 14100858 (Version 1)
Quarter: 2017Q4

REPORT INFORMATION
  Report Type: Spontaneous
  Country: US (occurrence: None)
  Receive Date: 20171017
  Receipt Date: 20171017
  Transmission Date: 20180321
  Serious: Yes (Life-Threatening, Hospitalization)
  Sender: FDA-Public Use
  Company Number: None

PATIENT
  Age: 62 Year
  Sex: Male
  Weight: 129.28 kg

DRUGS (10)
  1. DIGOXIN. [Concomitant]
     Active Substance: DIGOXIN
  2. GABAPENTIN. [Concomitant]
     Active Substance: GABAPENTIN
  3. FINASTERIDE. [Concomitant]
     Active Substance: FINASTERIDE
  4. SPIROLACTONE [Concomitant]
     Active Substance: SPIRONOLACTONE
  5. METOPROLOL. [Concomitant]
     Active Substance: METOPROLOL
  6. ACTHAR [Suspect]
     Active Substance: CORTICOTROPIN
     Indication: SARCOIDOSIS
     Dosage: DOSE - 40 UNITS, 0.5 ML?ADM. ROUTE - INJECTION?FREQUENCY - EVERY 72 HOURS
     Dates: start: 201704, end: 20170920
  7. ELIQUIS [Concomitant]
     Active Substance: APIXABAN
  8. PREDNISONE. [Concomitant]
     Active Substance: PREDNISONE
  9. HYDROCODONE [Concomitant]
     Active Substance: HYDROCODONE
  10. LANTUS HUMULIN R [Concomitant]

REACTIONS (9)
  - Peripheral swelling [None]
  - Pain in extremity [None]
  - Asthenia [None]
  - Palpitations [None]
  - Blood glucose increased [None]
  - Blister [None]
  - Heart rate increased [None]
  - Dyspnoea [None]
  - Dizziness [None]

NARRATIVE: CASE EVENT DATE: 201705
